FAERS Safety Report 16254812 (Version 1)
Quarter: 2019Q2

REPORT INFORMATION
  Report Type: Spontaneous
  Country: US (occurrence: US)
  Receive Date: 20190326
  Receipt Date: 20190326
  Transmission Date: 20190711
  Serious: No
  Sender: FDA-Public Use
  Company Number: None

PATIENT
  Sex: Female

DRUGS (1)
  1. TALTZ [Suspect]
     Active Substance: IXEKIZUMAB
     Dates: start: 20180701

REACTIONS (6)
  - Mood swings [None]
  - Insomnia [None]
  - Anger [None]
  - Fatigue [None]
  - Headache [None]
  - Injection site pain [None]
